FAERS Safety Report 24644181 (Version 1)
Quarter: 2024Q4

REPORT INFORMATION
  Report Type: Spontaneous
  Country: CN (occurrence: CN)
  Receive Date: 20241120
  Receipt Date: 20241120
  Transmission Date: 20250114
  Serious: Yes (Hospitalization, Other)
  Sender: ORGANON
  Company Number: CN-ORGANON-O2411CHN000791

PATIENT
  Age: 78 Year
  Sex: Female
  Weight: 44 kg

DRUGS (3)
  1. FOSAMAX [Suspect]
     Active Substance: ALENDRONATE SODIUM
     Indication: Osteoporosis postmenopausal
     Dosage: 70 MILLIGRAM, ONCE WEEKLY
     Route: 048
     Dates: start: 20230330, end: 20240222
  2. MINODRONIC ACID [Suspect]
     Active Substance: MINODRONIC ACID
     Indication: Osteoporosis postmenopausal
     Dosage: UNK, EVERY 4 WEEKS (QW4)
     Dates: start: 20230329, end: 20240131
  3. CALCIUM CARBONATE\CHOLECALCIFEROL [Suspect]
     Active Substance: CALCIUM CARBONATE\CHOLECALCIFEROL
     Indication: Osteoporosis postmenopausal
     Dosage: UNK UNK, QD
     Dates: start: 20230329, end: 20240201

REACTIONS (1)
  - Angina unstable [Recovering/Resolving]

NARRATIVE: CASE EVENT DATE: 20240124
